FAERS Safety Report 6754586-2 (Version None)
Quarter: 2010Q2

REPORT INFORMATION
  Report Type: 
  Country: None (occurrence: None)
  Receive Date: 20100603
  Receipt Date: 20100505
  Transmission Date: 20101027
  Serious: Yes (Death)
  Sender: FDA-Public Use
  Company Number: PHHY2010NL35213

PATIENT
  Sex: Male

DRUGS (1)
  1. ZOMETA [Suspect]
     Route: 042

REACTIONS (1)
  - DEATH [None]
